FAERS Safety Report 8524452-0 (Version None)
Quarter: 2012Q3

REPORT INFORMATION
  Report Type: 
  Country: None (occurrence: None)
  Receive Date: 20120720
  Receipt Date: 20120718
  Transmission Date: 20120928
  Serious: No
  Sender: FDA-Public Use
  Company Number: US-PFIZER INC-2012174459

PATIENT
  Sex: Female
  Weight: 61.224 kg

DRUGS (4)
  1. SYNTHROID [Concomitant]
     Indication: THYROID DISORDER
     Dosage: 75 UG, 1X/DAY
  2. LIPITOR [Suspect]
     Dosage: 10 MG, 3X/WEEK
     Route: 048
  3. DILTIAZEM [Concomitant]
     Dosage: 120 MG, UNK
  4. LIPITOR [Suspect]
     Indication: BLOOD CHOLESTEROL INCREASED
     Dosage: 10 MG, 1X/DAY
     Route: 048

REACTIONS (3)
  - DYSSTASIA [None]
  - INCONTINENCE [None]
  - MUSCULOSKELETAL DISCOMFORT [None]
